FAERS Safety Report 5707232-0 (Version None)
Quarter: 2008Q2

REPORT INFORMATION
  Report Type: 
  Country: None (occurrence: None)
  Receive Date: 20080415
  Receipt Date: 20080415
  Transmission Date: 20081010
  Serious: No
  Sender: FDA-Public Use
  Company Number: None

PATIENT

DRUGS (3)
  1. IMATINIB MESYLATE [Suspect]
  2. HYDROXYUREA [Suspect]
  3. RAD001 [Suspect]

REACTIONS (2)
  - HAEMOGLOBIN ABNORMAL [None]
  - PAIN [None]
